FAERS Safety Report 11423474 (Version 1)
Quarter: 2015Q3

REPORT INFORMATION
  Report Type: Spontaneous
  Country: US (occurrence: US)
  Receive Date: 20150827
  Receipt Date: 20150827
  Transmission Date: 20151125
  Serious: Yes (Other)
  Sender: FDA-Public Use
  Company Number: US-PROCTER_AND_GAMBLE-CIO15051320

PATIENT
  Sex: Female

DRUGS (1)
  1. CREST ANTI CAVITY REGULAR [Suspect]
     Active Substance: SODIUM FLUORIDE
     Route: 002

REACTIONS (3)
  - Diverticulitis [Unknown]
  - Haemorrhage [Unknown]
  - Malaise [Unknown]
